FAERS Safety Report 5294626-3 (Version None)
Quarter: 2007Q2

REPORT INFORMATION
  Report Type: 
  Country: None (occurrence: None)
  Receive Date: 20070412
  Receipt Date: 20070326
  Transmission Date: 20071010
  Serious: Yes (Life-Threatening)
  Sender: FDA-Public Use
  Company Number: FR-GLAXOSMITHKLINE-B0463536A

PATIENT
  Age: 30 Month
  Sex: Female

DRUGS (7)
  1. VENTOLIN [Suspect]
     Indication: RESPIRATORY DISTRESS
     Dates: start: 20061219
  2. CLAMOXYL [Suspect]
     Dates: start: 20061218
  3. BECOTIDE [Suspect]
     Dates: start: 20061218
  4. DIPRIVAN [Suspect]
     Dates: start: 20061219
  5. HYPNOVEL [Suspect]
     Dates: start: 20061219
  6. BRICANYL [Suspect]
     Dates: start: 20061218
  7. SOLU-MEDROL [Concomitant]
     Dates: start: 20061219

REACTIONS (3)
  - LACTIC ACIDOSIS [None]
  - OXYGEN SATURATION DECREASED [None]
  - RESPIRATORY DISTRESS [None]
